FAERS Safety Report 8385704 (Version 2)
Quarter: 2013Q4

REPORT INFORMATION
  Report Type: Spontaneous
  Country: US (occurrence: US)
  Receive Date: 20120119
  Receipt Date: 20131223
  Transmission Date: 20140711
  Serious: No
  Sender: FDA-Public Use
  Company Number: 2012SP002852

PATIENT
  Age: 48 Year
  Sex: Female

DRUGS (2)
  1. MELOXICAM [Suspect]
     Dates: start: 201205
  2. LEXAPRO [Suspect]
     Indication: ANXIETY
     Dates: start: 2007

REACTIONS (3)
  - Drug interaction [Unknown]
  - Arthritis [Unknown]
  - Hypoaesthesia [Unknown]
